FAERS Safety Report 25894130 (Version 2)
Quarter: 2025Q4

REPORT INFORMATION
  Report Type: Spontaneous
  Country: US (occurrence: US)
  Receive Date: 20251008
  Receipt Date: 20251011
  Transmission Date: 20260118
  Serious: No
  Sender: ABBVIE
  Company Number: US-ABBVIE-6486120

PATIENT
  Age: 30 Year
  Sex: Female
  Weight: 63.502 kg

DRUGS (1)
  1. HUMIRA [Suspect]
     Active Substance: ADALIMUMAB
     Indication: Uveitis
     Dosage: FORM STRENGTH: 40 MILLIGRAM
     Route: 058
     Dates: start: 2021

REACTIONS (1)
  - Product storage error [Recovered/Resolved]

NARRATIVE: CASE EVENT DATE: 20250101
